FAERS Safety Report 23680691 (Version 1)
Quarter: 2024Q1

REPORT INFORMATION
  Report Type: Report from Study
  Country: US (occurrence: US)
  Receive Date: 20240328
  Receipt Date: 20240328
  Transmission Date: 20240410
  Serious: Yes (Hospitalization, Other)
  Sender: FDA-Public Use
  Company Number: US-ABBVIE-5607409

PATIENT
  Sex: Male

DRUGS (9)
  1. SKYRIZI [Suspect]
     Active Substance: RISANKIZUMAB-RZAA
     Indication: Dermatitis atopic
     Dosage: WEEK 0?STRENGTH: 150 MG
     Route: 058
     Dates: start: 202212
  2. SKYRIZI [Suspect]
     Active Substance: RISANKIZUMAB-RZAA
     Indication: Psoriasis
     Dosage: WEEK 4?STRENGTH: 150 MG
     Route: 058
     Dates: start: 202312
  3. SKYRIZI [Suspect]
     Active Substance: RISANKIZUMAB-RZAA
     Dosage: FORM STRENGTH: 150 MG
     Route: 058
  4. SKYRIZI [Suspect]
     Active Substance: RISANKIZUMAB-RZAA
     Route: 058
  5. CETIRIZINE HCL [Concomitant]
     Active Substance: CETIRIZINE HYDROCHLORIDE
     Indication: Product used for unknown indication
  6. CLOBETASOL PROPIONATE [Concomitant]
     Active Substance: CLOBETASOL PROPIONATE
     Indication: Product used for unknown indication
  7. DESLORATADINE [Concomitant]
     Active Substance: DESLORATADINE
     Indication: Product used for unknown indication
  8. HYDROXYZINE HYDROCHLORIDE [Concomitant]
     Active Substance: HYDROXYZINE HYDROCHLORIDE
     Indication: Product used for unknown indication
  9. DUPIXENT [Suspect]
     Active Substance: DUPILUMAB
     Indication: Psoriasis
     Route: 058

REACTIONS (16)
  - Autoimmune disorder [Recovering/Resolving]
  - Pruritus [Unknown]
  - Psoriatic arthropathy [Unknown]
  - Joint stiffness [Unknown]
  - Condition aggravated [Unknown]
  - Multiple allergies [Recovering/Resolving]
  - Skin irritation [Unknown]
  - Arthralgia [Recovering/Resolving]
  - Therapeutic response shortened [Unknown]
  - Body temperature increased [Recovering/Resolving]
  - Chills [Recovering/Resolving]
  - Nausea [Unknown]
  - Vomiting [Unknown]
  - Abdominal pain upper [Unknown]
  - Sinus disorder [Recovering/Resolving]
  - Oropharyngeal discomfort [Recovering/Resolving]
